FAERS Safety Report 18814525 (Version 1)
Quarter: 2021Q1

REPORT INFORMATION
  Report Type: Other
  Country: NL (occurrence: NL)
  Receive Date: 20210201
  Receipt Date: 20210201
  Transmission Date: 20210419
  Serious: Yes (Other)
  Sender: FDA-Public Use
  Company Number: NL-GLENMARK PHARMACEUTICALS-2021GMK051790

PATIENT

DRUGS (6)
  1. TOPIRAMATE. [Suspect]
     Active Substance: TOPIRAMATE
     Indication: DISSOCIATIVE DISORDER
     Dosage: 100 MILLIGRAM, QD (1X PER DAG 1 TABLET)
     Route: 065
     Dates: start: 2018
  2. CLOMIPRAMINE [Suspect]
     Active Substance: CLOMIPRAMINE
     Indication: DEPRESSION
     Dosage: 150 MILLIGRAM, OD (1X DAAGS 2 TABLETTEN)
     Route: 065
     Dates: start: 2013
  3. TOPIRAMATE. [Suspect]
     Active Substance: TOPIRAMATE
     Indication: POST-TRAUMATIC STRESS DISORDER
     Dosage: 50 MILLIGRAM, QD (1X PER DAG 1 TABLET)
     Route: 065
     Dates: start: 2018
  4. CLOMIPRAMINE [Suspect]
     Active Substance: CLOMIPRAMINE
     Indication: POST-TRAUMATIC STRESS DISORDER
  5. TOPIRAMATE. [Suspect]
     Active Substance: TOPIRAMATE
     Indication: DISSOCIATIVE DISORDER
  6. TOPIRAMATE. [Suspect]
     Active Substance: TOPIRAMATE
     Indication: POST-TRAUMATIC STRESS DISORDER

REACTIONS (7)
  - Paraesthesia [Not Recovered/Not Resolved]
  - Weight increased [Unknown]
  - Liver function test increased [Unknown]
  - Headache [Unknown]
  - Suicide attempt [Unknown]
  - Face oedema [Unknown]
  - Acromegaly [Unknown]
